FAERS Safety Report 8008741 (Version 5)
Quarter: 2014Q3

REPORT INFORMATION
  Report Type: Spontaneous
  Country: US (occurrence: US)
  Receive Date: 20110624
  Receipt Date: 20140915
  Transmission Date: 20150326
  Serious: Yes (Hospitalization, Other)
  Sender: FDA-Public Use
  Company Number: US-009507513-1106USA03367

PATIENT
  Sex: Female
  Weight: 79.37 kg

DRUGS (6)
  1. FOSAMAX [Suspect]
     Active Substance: ALENDRONATE SODIUM
     Indication: OSTEOPOROSIS
     Dosage: 10 MG, QD
     Route: 048
     Dates: start: 199608, end: 200009
  2. FOSAMAX [Suspect]
     Active Substance: ALENDRONATE SODIUM
     Indication: OSTEOPOROSIS
     Dosage: 70 MG, QW
     Route: 048
     Dates: start: 20080220, end: 200908
  3. FOSAMAX [Suspect]
     Active Substance: ALENDRONATE SODIUM
     Indication: OSTEOPENIA
     Dosage: 70 MG, QW
     Route: 048
     Dates: start: 200010, end: 20050904
  4. FOSAMAX [Suspect]
     Active Substance: ALENDRONATE SODIUM
     Indication: OSTEOPENIA
  5. FOSAMAX [Suspect]
     Active Substance: ALENDRONATE SODIUM
     Dosage: 70 MG, QW
     Route: 048
     Dates: start: 20070705, end: 20080121
  6. FOSAMAX [Suspect]
     Active Substance: ALENDRONATE SODIUM
     Dosage: 10 MG, QD
     Route: 048
     Dates: start: 20060628, end: 200706

REACTIONS (30)
  - Arthropathy [Unknown]
  - Femur fracture [Recovered/Resolved]
  - Depression [Unknown]
  - Migraine [Unknown]
  - Osteoporosis [Unknown]
  - Anxiety [Unknown]
  - Fibromyalgia [Unknown]
  - Brain abscess [Unknown]
  - Infection [Unknown]
  - Appendix disorder [Unknown]
  - Fall [Unknown]
  - Adverse drug reaction [Recovering/Resolving]
  - Pneumothorax [Unknown]
  - Hyperlipidaemia [Unknown]
  - Benign neoplasm [Unknown]
  - Arthralgia [Unknown]
  - Thyroid neoplasm [Unknown]
  - Open reduction of fracture [Unknown]
  - Femur fracture [Unknown]
  - Pruritus [Recovering/Resolving]
  - Exostosis [Unknown]
  - Intramedullary rod insertion [Unknown]
  - Pneumonia aspiration [Unknown]
  - Anaemia postoperative [Unknown]
  - Weight increased [Unknown]
  - Rib fracture [Unknown]
  - Pain in extremity [Unknown]
  - Osteoarthritis [Unknown]
  - Hypertension [Unknown]
  - Fall [Unknown]

NARRATIVE: CASE EVENT DATE: 2005
